FAERS Safety Report 23736597 (Version 1)
Quarter: 2024Q2

REPORT INFORMATION
  Report Type: Spontaneous
  Country: US (occurrence: US)
  Receive Date: 20240412
  Receipt Date: 20240412
  Transmission Date: 20240715
  Serious: No
  Sender: FDA-Public Use
  Company Number: US-TRIS PHARMA, INC.-24US011448

PATIENT

DRUGS (1)
  1. ACETAMINOPHEN\HYDROCODONE BITARTRATE [Suspect]
     Active Substance: ACETAMINOPHEN\HYDROCODONE BITARTRATE
     Indication: Pain
     Dosage: UNK

REACTIONS (7)
  - Migraine [Unknown]
  - Diarrhoea [Unknown]
  - Product physical issue [Unknown]
  - Product substitution issue [Unknown]
  - Headache [Unknown]
  - Drug ineffective [Unknown]
  - Constipation [Unknown]
